FAERS Safety Report 7249285-7 (Version None)
Quarter: 2011Q1

REPORT INFORMATION
  Report Type: 
  Country: None (occurrence: None)
  Receive Date: 20110128
  Receipt Date: 20101208
  Transmission Date: 20110831
  Serious: Yes (Life-Threatening, Other)
  Sender: FDA-Public Use
  Company Number: US-BAYER-2010-004352

PATIENT
  Sex: Female

DRUGS (1)
  1. YAZ [Suspect]
     Indication: PRODUCT USED FOR UNKNOWN INDICATION
     Dosage: UNK
     Route: 048
     Dates: start: 20081201, end: 20090901

REACTIONS (6)
  - PULMONARY EMBOLISM [None]
  - DYSPNOEA [None]
  - ANGIOPATHY [None]
  - PARAESTHESIA [None]
  - DEEP VEIN THROMBOSIS [None]
  - NERVOUS SYSTEM DISORDER [None]
